FAERS Safety Report 8895621 (Version 1)
Quarter: 2012Q4

REPORT INFORMATION
  Report Type: 
  Country: US (occurrence: US)
  Receive Date: 20121108
  Receipt Date: 20121108
  Transmission Date: 20130627
  Serious: No
  Sender: FDA-Public Use
  Company Number: US-BAYER-2012-112447

PATIENT
  Age: 37 Year
  Sex: Female

DRUGS (2)
  1. MIRENA [Suspect]
     Indication: CONTRACEPTION
     Dosage: 20 mcg/24hr, CONT
     Route: 015
     Dates: start: 20121022, end: 20121022
  2. ORAL CONTRACEPTIVE NOS [Concomitant]
     Dosage: UNK
     Route: 048
     Dates: end: 201210

REACTIONS (3)
  - Device physical property issue [None]
  - Procedural hypotension [None]
  - Post procedural discomfort [None]
